FAERS Safety Report 8458518-0 (Version None)
Quarter: 2012Q2

REPORT INFORMATION
  Report Type: 
  Country: None (occurrence: None)
  Receive Date: 20120622
  Receipt Date: 20120618
  Transmission Date: 20120825
  Serious: No
  Sender: FDA-Public Use
  Company Number: US-PFIZER INC-2012147419

PATIENT

DRUGS (8)
  1. LIPITOR [Suspect]
     Dosage: UNK
  2. ZOLOFT [Concomitant]
     Dosage: 2 TABLETS ONCE A DAY
     Route: 048
  3. LORAZEPAM [Concomitant]
     Dosage: 0.5 MG, 2X/DAY
     Route: 048
  4. FLEXERIL [Concomitant]
     Dosage: 10 MG, 2X/DAY
     Route: 048
  5. PRAVACHOL [Concomitant]
     Dosage: 40 MG, AT BEDTIME
     Route: 048
  6. PREMPRO [Concomitant]
     Dosage: ESTROGENS CONJUGATED/ MEDROXYPROGESTERONE, 0.625/2.5 MG 1X/DAY
  7. VICODIN [Concomitant]
     Dosage: HYDROCODONE/ PARACETAMOL 5-500 MG EVERY FOUR HOUR AS NEEDED
     Route: 048
  8. NEXIUM [Concomitant]
     Dosage: 40 MG, 1X/DAY
     Route: 048

REACTIONS (1)
  - DRUG HYPERSENSITIVITY [None]
